FAERS Safety Report 5761580-7 (Version None)
Quarter: 2008Q2

REPORT INFORMATION
  Report Type: 
  Country: None (occurrence: None)
  Receive Date: 20080606
  Receipt Date: 20071009
  Transmission Date: 20081010
  Serious: Yes (Hospitalization, Other)
  Sender: FDA-Public Use
  Company Number: JP-PFIZER INC-2007087640

PATIENT
  Sex: Male

DRUGS (6)
  1. MIGLITOL TABLET [Suspect]
     Indication: TYPE 2 DIABETES MELLITUS
     Dosage: DAILY DOSE:75MG
     Route: 048
     Dates: start: 20061027, end: 20061222
  2. MIGLITOL TABLET [Suspect]
     Dosage: DAILY DOSE:150MG
     Route: 048
     Dates: start: 20061222, end: 20070508
  3. MIGLITOL TABLET [Suspect]
     Dosage: DAILY DOSE:225MG
     Route: 048
     Dates: start: 20070508, end: 20070906
  4. MIGLITOL TABLET [Suspect]
     Dosage: DAILY DOSE:225MG
     Route: 048
     Dates: start: 20070911, end: 20070912
  5. MIGLITOL TABLET [Suspect]
     Dosage: DAILY DOSE:225MG
     Route: 048
     Dates: start: 20070918, end: 20071001
  6. METFORMIN HCL [Concomitant]
     Indication: TYPE 2 DIABETES MELLITUS
     Dosage: DAILY DOSE:1000MG
     Route: 048
     Dates: start: 20060128, end: 20071002

REACTIONS (4)
  - ANAEMIA [None]
  - DIVERTICULUM INTESTINAL HAEMORRHAGIC [None]
  - LOSS OF CONSCIOUSNESS [None]
  - MELAENA [None]
